FAERS Safety Report 6746167-1 (Version None)
Quarter: 2010Q2

REPORT INFORMATION
  Report Type: 
  Country: None (occurrence: None)
  Receive Date: 20100528
  Receipt Date: 20100126
  Transmission Date: 20101027
  Serious: Yes (Hospitalization)
  Sender: FDA-Public Use
  Company Number: US-ASTRAZENECA-2010SE03664

PATIENT
  Age: 89 Year
  Sex: Male

DRUGS (4)
  1. PRILOSEC [Suspect]
     Route: 048
     Dates: start: 20020615
  2. PRILOSEC OTC [Suspect]
     Route: 048
  3. ASPIRIN [Suspect]
     Dates: start: 20030101
  4. PLAVIX [Suspect]
     Dates: start: 20030101

REACTIONS (1)
  - HAEMATURIA [None]
